FAERS Safety Report 24072210 (Version 1)
Quarter: 2024Q3

REPORT INFORMATION
  Report Type: Spontaneous
  Country: US (occurrence: US)
  Receive Date: 20240710
  Receipt Date: 20240710
  Transmission Date: 20241017
  Serious: Yes (Other)
  Sender: CHEPLAPHARM
  Company Number: US-CHEPLA-2024008344

PATIENT
  Age: 84 Year
  Sex: Female

DRUGS (1)
  1. HYDROXYUREA [Suspect]
     Active Substance: HYDROXYUREA
     Indication: Myeloproliferative neoplasm
     Dosage: 1000 AND 1500 MG BY MOUTH DAILY FOR 12 YEARS
     Route: 048

REACTIONS (2)
  - Dermatomyositis [Unknown]
  - Off label use [Unknown]
